FAERS Safety Report 13537116 (Version 5)
Quarter: 2018Q3

REPORT INFORMATION
  Report Type: Report from Study
  Country: CO (occurrence: CO)
  Receive Date: 20170511
  Receipt Date: 20180831
  Transmission Date: 20181010
  Serious: Yes (Life-Threatening, Hospitalization)
  Sender: FDA-Public Use
  Company Number: CO-INCYTE CORPORATION-2017IN003634

PATIENT

DRUGS (4)
  1. JAKAVI [Suspect]
     Active Substance: RUXOLITINIB
     Dosage: 15 MG, BID
     Route: 048
     Dates: start: 201703
  2. JAKAVI [Suspect]
     Active Substance: RUXOLITINIB
     Dosage: 20 MG, BID (EVERY 12 HOURS)
     Route: 048
  3. JAKAVI [Suspect]
     Active Substance: RUXOLITINIB
     Indication: MYELOFIBROSIS
     Dosage: 40 MG, QD (EVERYDAY)
     Route: 048
     Dates: start: 20161229
  4. JAKAVI [Suspect]
     Active Substance: RUXOLITINIB
     Dosage: 15 MG, BID
     Route: 048
     Dates: start: 20170225

REACTIONS (14)
  - Platelet count increased [Unknown]
  - Hyperplasia [Unknown]
  - Headache [Unknown]
  - Vaginal haemorrhage [Unknown]
  - Blood potassium increased [Unknown]
  - General physical health deterioration [Unknown]
  - Vertigo [Unknown]
  - Dizziness [Unknown]
  - Blood magnesium increased [Unknown]
  - Platelet count decreased [Unknown]
  - Influenza [Unknown]
  - White blood cell count increased [Unknown]
  - Pruritus [Unknown]
  - Red blood cell sedimentation rate increased [Unknown]

NARRATIVE: CASE EVENT DATE: 20170421
